FAERS Safety Report 5454998-3 (Version None)
Quarter: 2007Q3

REPORT INFORMATION
  Report Type: 
  Country: None (occurrence: None)
  Receive Date: 20070913
  Receipt Date: 20070830
  Transmission Date: 20080115
  Serious: Yes (Other)
  Sender: FDA-Public Use
  Company Number: POMP-11176

PATIENT
  Age: 1 Year
  Sex: Female
  Weight: 6.29 kg

DRUGS (3)
  1. MYOZYME [Suspect]
     Indication: GLYCOGEN STORAGE DISEASE TYPE II
     Dosage: 20 MG/KG Q2WKS IV
     Route: 042
     Dates: start: 20060619, end: 20070809
  2. CAPTOPRIL [Concomitant]
  3. FRUSEMIDE [Concomitant]

REACTIONS (13)
  - BLOOD PRESSURE DECREASED [None]
  - CARDIAC FAILURE [None]
  - CONDITION AGGRAVATED [None]
  - CYANOSIS [None]
  - DISEASE RECURRENCE [None]
  - FLUID OVERLOAD [None]
  - HYPERHIDROSIS [None]
  - MYOCARDIAL ISCHAEMIA [None]
  - NODAL ARRHYTHMIA [None]
  - PALLOR [None]
  - PYREXIA [None]
  - RESPIRATORY DISTRESS [None]
  - TACHYCARDIA [None]
